FAERS Safety Report 5894106-8 (Version None)
Quarter: 2008Q3

REPORT INFORMATION
  Report Type: 
  Country: None (occurrence: None)
  Receive Date: 20080923
  Receipt Date: 20080102
  Transmission Date: 20090109
  Serious: No
  Sender: FDA-Public Use
  Company Number: US-ASTRAZENECA-2008UW00162

PATIENT
  Age: 23 Year
  Sex: Female
  Weight: 74.8 kg

DRUGS (3)
  1. SEROQUEL [Suspect]
     Indication: BIPOLAR DISORDER
     Route: 048
     Dates: start: 20070801
  2. ACESULFAME POTASSIUM [Interacting]
  3. LAMICTAL [Concomitant]

REACTIONS (5)
  - DELUSION [None]
  - DRUG INTERACTION [None]
  - INSOMNIA [None]
  - NASOPHARYNGITIS [None]
  - WEIGHT INCREASED [None]
